FAERS Safety Report 6657351-X (Version None)
Quarter: 2010Q1

REPORT INFORMATION
  Report Type: 
  Country: None (occurrence: None)
  Receive Date: 20100319
  Receipt Date: 20090617
  Transmission Date: 20100710
  Serious: Yes (Other)
  Sender: FDA-Public Use
  Company Number: 2009SP012746

PATIENT
  Age: 72 Year
  Sex: Male

DRUGS (3)
  1. PEG-INTRON [Suspect]
     Indication: HEPATITIS C
     Dosage: ; SC
     Route: 058
     Dates: start: 20080723, end: 20090617
  2. RIBAVIRIN [Suspect]
     Indication: HEPATITIS C
     Dosage: ; PO
     Route: 048
     Dates: start: 20080723, end: 20090617
  3. COUMADIN [Concomitant]

REACTIONS (14)
  - ABDOMINAL DISCOMFORT [None]
  - ACCIDENTAL EXPOSURE [None]
  - BLOOD GLUCOSE INCREASED [None]
  - DECREASED APPETITE [None]
  - DYSGEUSIA [None]
  - FATIGUE [None]
  - HERPES ZOSTER [None]
  - HYPERAESTHESIA [None]
  - HYPOTENSION [None]
  - HYPOTHYROIDISM [None]
  - INSOMNIA [None]
  - ONYCHOCLASIS [None]
  - RED BLOOD CELL COUNT DECREASED [None]
  - VOMITING [None]
